FAERS Safety Report 20310829 (Version 1)
Quarter: 2022Q1

REPORT INFORMATION
  Report Type: Spontaneous
  Country: US (occurrence: None)
  Receive Date: 20220107
  Receipt Date: 20220107
  Transmission Date: 20220423
  Serious: No
  Sender: FDA-Public Use
  Company Number: None

PATIENT
  Sex: Female

DRUGS (1)
  1. DUPIXENT [Suspect]
     Active Substance: DUPILUMAB
     Indication: Dermatitis atopic
     Dosage: OTHER QUANTITY : 2 PENS;?FREQUENCY : DAILY;?
     Route: 030
     Dates: start: 202201

REACTIONS (2)
  - Wrong technique in product usage process [None]
  - Product dose omission issue [None]
